FAERS Safety Report 9325635 (Version 1)
Quarter: 2013Q2

REPORT INFORMATION
  Report Type: Spontaneous
  Country: US (occurrence: None)
  Receive Date: 20130531
  Receipt Date: 20130531
  Transmission Date: 20140414
  Serious: No
  Sender: FDA-Public Use
  Company Number: None

PATIENT
  Age: 65 Year
  Sex: Male

DRUGS (1)
  1. REMICADE [Suspect]
     Indication: RHEUMATOID ARTHRITIS
     Dosage: Q8W
     Route: 042
     Dates: start: 20130509, end: 20130529

REACTIONS (4)
  - Joint lock [None]
  - Abasia [None]
  - Pain [None]
  - Musculoskeletal disorder [None]
